FAERS Safety Report 6917305-2 (Version None)
Quarter: 2010Q3

REPORT INFORMATION
  Report Type: 
  Country: None (occurrence: None)
  Receive Date: 20100810
  Receipt Date: 20100727
  Transmission Date: 20110219
  Serious: Yes (Hospitalization)
  Sender: FDA-Public Use
  Company Number: US-ELI_LILLY_AND_COMPANY-US201007007095

PATIENT
  Sex: Female

DRUGS (8)
  1. ZYPREXA [Suspect]
     Indication: AGGRESSION
     Dosage: 12.5 MG, DAILY (1/D)
     Dates: start: 20100601
  2. ZYPREXA [Suspect]
     Dosage: 7.5 MG, DAILY (1/D)
  3. ZYPREXA [Suspect]
     Dosage: 5 MG, DAILY (1/D)
  4. ZYPREXA [Suspect]
     Dosage: 2.5 MG, 2/D
  5. ZYPREXA ZYDIS [Suspect]
     Dosage: 5 MG, UNK
  6. ARICEPT [Concomitant]
  7. NAMENDA [Concomitant]
  8. VITAMIN TAB [Concomitant]

REACTIONS (9)
  - APHASIA [None]
  - ASTHENIA [None]
  - FALL [None]
  - FEEDING DISORDER [None]
  - HIP FRACTURE [None]
  - MEMORY IMPAIRMENT [None]
  - OFF LABEL USE [None]
  - SOMNOLENCE [None]
  - TREMOR [None]
